FAERS Safety Report 6373281-5 (Version None)
Quarter: 2009Q3

REPORT INFORMATION
  Report Type: 
  Country: None (occurrence: None)
  Receive Date: 20090924
  Receipt Date: 20090401
  Transmission Date: 20100115
  Serious: No
  Sender: FDA-Public Use
  Company Number: US-ASTRAZENECA-2009UW08192

PATIENT
  Age: 58 Year
  Sex: Male
  Weight: 145.1 kg

DRUGS (7)
  1. SEROQUEL [Suspect]
     Route: 048
  2. DEPAKOTE ER [Suspect]
     Indication: BIPOLAR I DISORDER
     Route: 048
  3. SIMVASTATIN [Concomitant]
  4. LISINOPRIL [Concomitant]
  5. METOPROLOL TARTRATE [Concomitant]
  6. ACETYLSALICYLIC ACID SRT [Concomitant]
  7. LEVOTHYROXINE SODIUM [Concomitant]

REACTIONS (2)
  - PARANOIA [None]
  - SOMNOLENCE [None]
